FAERS Safety Report 4495128-4 (Version None)
Quarter: 2004Q4

REPORT INFORMATION
  Report Type: 
  Country: None (occurrence: None)
  Receive Date: 20041104
  Receipt Date: 20041018
  Transmission Date: 20050328
  Serious: Yes (Death)
  Sender: FDA-Public Use
  Company Number: 2004-BP-10537RO

PATIENT
  Age: 56 Year
  Sex: 0

DRUGS (2)
  1. CODEINE PHOSPHATE ORAL SOLUTION 15 MG/5 ML (CODEINE PHOSPHATE) [Suspect]
  2. UNKNOWN DRUG [Suspect]

REACTIONS (1)
  - MULTIPLE DRUG OVERDOSE [None]
